FAERS Safety Report 13166607 (Version 1)
Quarter: 2017Q1

REPORT INFORMATION
  Report Type: Spontaneous
  Country: US (occurrence: US)
  Receive Date: 20170126
  Receipt Date: 20170126
  Transmission Date: 20170428
  Serious: No
  Sender: FDA-Public Use
  Company Number: None

PATIENT
  Age: 35 Year
  Sex: Female
  Weight: 128.25 kg

DRUGS (7)
  1. LEVORA [Concomitant]
     Active Substance: ETHINYL ESTRADIOL\LEVONORGESTREL
  2. FENOFIBRATE. [Suspect]
     Active Substance: FENOFIBRATE
     Indication: BLOOD CHOLESTEROL INCREASED
     Route: 048
  3. ATENOLOL. [Concomitant]
     Active Substance: ATENOLOL
  4. HUMIRA [Concomitant]
     Active Substance: ADALIMUMAB
  5. IMURAN [Concomitant]
     Active Substance: AZATHIOPRINE
  6. FISH OIL [Concomitant]
     Active Substance: FISH OIL
  7. MULTIVITAMIN [Concomitant]
     Active Substance: VITAMINS

REACTIONS (3)
  - Arthralgia [None]
  - Joint swelling [None]
  - Drug ineffective [None]

NARRATIVE: CASE EVENT DATE: 20160522
